FAERS Safety Report 5473815-9 (Version None)
Quarter: 2007Q4

REPORT INFORMATION
  Report Type: 
  Country: None (occurrence: None)
  Receive Date: 20071001
  Receipt Date: 20070919
  Transmission Date: 20080405
  Serious: No
  Sender: FDA-Public Use
  Company Number: US-PFIZER INC-2007064007

PATIENT
  Sex: Female
  Weight: 59 kg

DRUGS (3)
  1. XALATAN [Suspect]
     Indication: INTRAOCULAR PRESSURE TEST
  2. ATENOLOL [Concomitant]
     Indication: BLOOD PRESSURE
  3. DYAZIDE [Concomitant]

REACTIONS (1)
  - NO ADVERSE REACTION [None]
